FAERS Safety Report 11641876 (Version 1)
Quarter: 2015Q4

REPORT INFORMATION
  Report Type: Spontaneous
  Country: JP (occurrence: JP)
  Receive Date: 20151019
  Receipt Date: 20151019
  Transmission Date: 20160304
  Serious: Yes (Hospitalization)
  Sender: FDA-Public Use
  Company Number: JP-BAYER-2015-440567

PATIENT
  Age: 30 Year
  Sex: Female

DRUGS (4)
  1. ACETYLSALICYLIC ACID({=100 MG) [Suspect]
     Active Substance: ASPIRIN
     Route: 048
  2. HEPARIN [Concomitant]
     Active Substance: HEPARIN SODIUM
     Dosage: 10000 U, QD
  3. WARFARIN POTASSIUM [Concomitant]
     Active Substance: WARFARIN POTASSIUM
     Indication: ANTITHROMBIN III DEFICIENCY
     Route: 048
  4. ANTI THROMBIN III [Concomitant]
     Dosage: 3000 U, BIW

REACTIONS (2)
  - Maternal exposure during pregnancy [None]
  - Pelvic venous thrombosis [Recovered/Resolved]
